FAERS Safety Report 9741051 (Version 1)
Quarter: 2013Q4

REPORT INFORMATION
  Report Type: Spontaneous
  Country: US (occurrence: US)
  Receive Date: 20131209
  Receipt Date: 20131209
  Transmission Date: 20140711
  Serious: Yes (Death, Hospitalization, Other)
  Sender: FDA-Public Use
  Company Number: US-PFIZER INC-2013351104

PATIENT
  Age: 67 Year
  Sex: Female
  Weight: 44.9 kg

DRUGS (1)
  1. DILANTIN-125 [Suspect]
     Indication: CONVULSION
     Dosage: 100 MG

REACTIONS (2)
  - Death [Fatal]
  - Crohn^s disease [Unknown]
